FAERS Safety Report 4661039-4 (Version None)
Quarter: 2005Q2

REPORT INFORMATION
  Report Type: 
  Country: None (occurrence: None)
  Receive Date: 20050511
  Receipt Date: 20050425
  Transmission Date: 20051028
  Serious: Yes (Hospitalization)
  Sender: FDA-Public Use
  Company Number: ATO-05-0121

PATIENT
  Age: 56 Year
  Sex: Female

DRUGS (2)
  1. TRISENOX [Suspect]
     Indication: MYELODYSPLASTIC SYNDROME
     Dosage: 0.25 MG/KG (0.25 MG/KG)IVI
     Route: 042
     Dates: start: 20050218
  2. CYTARABINE [Suspect]
     Indication: MYELODYSPLASTIC SYNDROME
     Dosage: 10 MG/M2 (BID), IVI
     Route: 042
     Dates: start: 20050218

REACTIONS (3)
  - FALL [None]
  - NEUROPATHY PERIPHERAL [None]
  - TIBIA FRACTURE [None]
